FAERS Safety Report 5730819-6 (Version None)
Quarter: 2008Q2

REPORT INFORMATION
  Report Type: 
  Country: None (occurrence: None)
  Receive Date: 20080507
  Receipt Date: 20080429
  Transmission Date: 20081010
  Serious: Yes (Other)
  Sender: FDA-Public Use
  Company Number: AU-PFIZER INC-2008030279

PATIENT
  Sex: Female

DRUGS (14)
  1. LIPITOR [Suspect]
     Indication: BLOOD CHOLESTEROL
  2. ATACAND [Concomitant]
  3. ATACAND HCT [Concomitant]
     Dosage: TEXT:8 MG/6.25 MG IN MORNING
  4. ATROVENT [Concomitant]
     Route: 045
  5. BRUFEN [Concomitant]
  6. PERINDOPRIL ERBUMINE [Concomitant]
  7. EZETROL [Concomitant]
  8. MINAX [Concomitant]
  9. NEXIUM [Concomitant]
  10. NORVASC [Concomitant]
  11. PANAMAX [Concomitant]
  12. PREDNISOLONE [Concomitant]
     Dosage: TEXT:5 MG, ONE IN MORNING-FREQ:1 MG AS DIRECTED BY PHYSICIAN
  13. PREMARIN [Concomitant]
  14. QUINBISUL [Concomitant]

REACTIONS (3)
  - ARTHRALGIA [None]
  - BLOOD PRESSURE INCREASED [None]
  - BLOOD PRESSURE SYSTOLIC INCREASED [None]
